FAERS Safety Report 16210797 (Version 3)
Quarter: 2019Q2

REPORT INFORMATION
  Report Type: Report from Study
  Country: US (occurrence: US)
  Receive Date: 20190418
  Receipt Date: 20190528
  Transmission Date: 20190711
  Serious: Yes (Other)
  Sender: FDA-Public Use
  Company Number: US-HORIZON-HPN-100-014-0023-2019

PATIENT
  Age: 23 Year
  Sex: Male

DRUGS (3)
  1. RAVICTI [Suspect]
     Active Substance: GLYCEROL PHENYLBUTYRATE
     Indication: ARGININOSUCCINATE SYNTHETASE DEFICIENCY
     Dosage: 5 CC/ML THREE TIMES DAILY
     Route: 048
     Dates: start: 20140728, end: 20160813
  2. SODIUM BENZOATE [Suspect]
     Active Substance: SODIUM BENZOATE
     Indication: ARGININOSUCCINATE SYNTHETASE DEFICIENCY
     Dosage: 225 CC/ML DAILY SINCE 20-FEB-2019
     Dates: start: 20021203
  3. L-ARGININE [Concomitant]
     Active Substance: ARGININE
     Dosage: 271 MG/KG SINCE 14-FEB-2019
     Dates: start: 19950226

REACTIONS (1)
  - Seizure [Recovered/Resolved]

NARRATIVE: CASE EVENT DATE: 20190216
